FAERS Safety Report 6330170-X (Version None)
Quarter: 2009Q3

REPORT INFORMATION
  Report Type: 
  Country: None (occurrence: None)
  Receive Date: 20090827
  Receipt Date: 20070522
  Transmission Date: 20100115
  Serious: Yes (Other)
  Sender: FDA-Public Use
  Company Number: US-ASTRAZENECA-2006UW21803

PATIENT
  Age: 58 Year
  Sex: Female
  Weight: 68.5 kg

DRUGS (18)
  1. SEROQUEL [Suspect]
     Indication: BIPOLAR DISORDER
     Dosage: 100-600 MG
     Route: 048
     Dates: start: 19990818
  2. SEROQUEL [Suspect]
     Indication: DEPRESSION
     Dosage: 100-600 MG
     Route: 048
     Dates: start: 19990818
  3. SEROQUEL [Suspect]
     Dosage: 600 MG
     Route: 048
     Dates: start: 19990101
  4. SEROQUEL [Suspect]
     Dosage: 600 MG
     Route: 048
     Dates: start: 19990101
  5. MS CONTIN [Concomitant]
     Dosage: 15-60 MG
     Dates: start: 19990727
  6. GLUCOPHAGE [Concomitant]
     Dates: start: 19991216
  7. GEODON [Concomitant]
  8. TOPAMAX [Concomitant]
  9. INSULIN [Concomitant]
  10. LASIX [Concomitant]
     Dates: start: 19990818
  11. AMBIEN [Concomitant]
     Dates: start: 19990712
  12. LOPRESSOR [Concomitant]
     Dosage: 100-200 MG
     Dates: start: 20000605
  13. EFFEXOR XR [Concomitant]
     Dates: start: 20000623
  14. ATACAND [Concomitant]
     Indication: BLOOD PRESSURE
     Dates: start: 19991112
  15. SYNTHROID [Concomitant]
     Dates: start: 20011012
  16. ATIVAN [Concomitant]
     Dosage: 5 MG TWO TIMES A DAY AND AT NIGHT
     Dates: start: 19990818
  17. METOPROLOL [Concomitant]
     Dates: start: 19990826
  18. CARBATROL [Concomitant]
     Dates: start: 19990818

REACTIONS (5)
  - DIABETES MELLITUS [None]
  - DIABETIC NEUROPATHY [None]
  - NEUROLEPTIC MALIGNANT SYNDROME [None]
  - TARDIVE DYSKINESIA [None]
  - TYPE 2 DIABETES MELLITUS [None]
